FAERS Safety Report 15742248 (Version 4)
Quarter: 2020Q2

REPORT INFORMATION
  Report Type: Spontaneous
  Country: US (occurrence: US)
  Receive Date: 20181219
  Receipt Date: 20200413
  Transmission Date: 20200713
  Serious: Yes (Other)
  Sender: FDA-Public Use
  Company Number: US-SA-2018SA343164

PATIENT
  Sex: Male

DRUGS (1)
  1. ICY HOT WITH LIDOCAINE [Suspect]
     Active Substance: LIDOCAINE\MENTHOL
     Dosage: UNK

REACTIONS (4)
  - Limb discomfort [Unknown]
  - Insomnia [Unknown]
  - Hypoacusis [Unknown]
  - Neuropathy peripheral [Unknown]
